FAERS Safety Report 7711674-1 (Version None)
Quarter: 2011Q3

REPORT INFORMATION
  Report Type: 
  Country: None (occurrence: None)
  Receive Date: 20110826
  Receipt Date: 20110722
  Transmission Date: 20111222
  Serious: No
  Sender: FDA-Public Use
  Company Number: US-BRISTOL-MYERS SQUIBB COMPANY-15918394

PATIENT
  Age: 77 Year
  Sex: Male

DRUGS (2)
  1. ONGLYZA [Suspect]
     Dates: start: 20110401
  2. FLOMAX [Concomitant]

REACTIONS (4)
  - DIARRHOEA [None]
  - HYPOTENSION [None]
  - FLATULENCE [None]
  - CONSTIPATION [None]
